FAERS Safety Report 25950432 (Version 1)
Quarter: 2025Q4

REPORT INFORMATION
  Report Type: Report from Study
  Country: US (occurrence: US)
  Receive Date: 20251023
  Receipt Date: 20251023
  Transmission Date: 20260118
  Serious: Yes (Death)
  Sender: ABBVIE
  Company Number: US-ABBVIE-6513839

PATIENT
  Age: 73 Year
  Sex: Female

DRUGS (1)
  1. SYNTHROID [Suspect]
     Active Substance: LEVOTHYROXINE SODIUM
     Indication: Product used for unknown indication
     Dosage: 88MCG/ TAKE ONE TABLET DAILY
     Route: 048
     Dates: start: 20220420, end: 20250709

REACTIONS (1)
  - Death [Fatal]

NARRATIVE: CASE EVENT DATE: 20250709
